FAERS Safety Report 17360547 (Version 2)
Quarter: 2020Q1

REPORT INFORMATION
  Report Type: Report from Study
  Country: CN (occurrence: CN)
  Receive Date: 20200203
  Receipt Date: 20200219
  Transmission Date: 20200409
  Serious: Yes (Hospitalization)
  Sender: FDA-Public Use
  Company Number: CN-VIFOR (INTERNATIONAL) INC.-VIT-2020-01631

PATIENT
  Age: 55 Year
  Sex: Male
  Weight: 57 kg

DRUGS (11)
  1. VELPHORO [Suspect]
     Active Substance: FERRIC OXYHYDROXIDE
     Indication: HYPERPHOSPHATAEMIA
     Route: 048
     Dates: start: 20200106, end: 20200126
  2. ISOSORBIDE DINITRATE. [Concomitant]
     Active Substance: ISOSORBIDE DINITRATE
     Indication: ARTERIOSCLEROSIS CORONARY ARTERY
     Dates: start: 20200127, end: 20200129
  3. CLOPIDOGREL BISULFATE. [Concomitant]
     Active Substance: CLOPIDOGREL BISULFATE
     Indication: ACUTE MYOCARDIAL INFARCTION
     Route: 048
     Dates: start: 20200128
  4. CLINDAMYCIN. [Concomitant]
     Active Substance: CLINDAMYCIN
     Indication: UPPER RESPIRATORY TRACT INFECTION
     Route: 042
     Dates: start: 20200127, end: 20200203
  5. GANLIXIN [Concomitant]
     Indication: LIVER INJURY
     Route: 048
     Dates: start: 20200127
  6. ADALAT [Concomitant]
     Active Substance: NIFEDIPINE
     Indication: ARTERIOSCLEROSIS CORONARY ARTERY
     Route: 048
  7. BAYER ASPIRIN [Concomitant]
     Active Substance: ASPIRIN
     Indication: ACUTE MYOCARDIAL INFARCTION
     Route: 048
     Dates: start: 20200128
  8. HUMULIN R [Concomitant]
     Active Substance: INSULIN HUMAN
     Dosage: IH
  9. XINKANG [Concomitant]
     Active Substance: ISOSORBIDE MONONITRATE
     Dates: end: 20200128
  10. HUMULIN R [Concomitant]
     Active Substance: INSULIN HUMAN
     Dosage: IH
  11. IMDO [Concomitant]
     Indication: ARTERIOSCLEROSIS CORONARY ARTERY
     Route: 048
     Dates: start: 20200131

REACTIONS (1)
  - Mental disorder [Recovering/Resolving]

NARRATIVE: CASE EVENT DATE: 20200127
